FAERS Safety Report 19388461 (Version 1)
Quarter: 2021Q2

REPORT INFORMATION
  Report Type: Spontaneous
  Country: US (occurrence: US)
  Receive Date: 20210607
  Receipt Date: 20210607
  Transmission Date: 20210717
  Serious: Yes (Other)
  Sender: FDA-Public Use
  Company Number: None

PATIENT
  Age: 37 Year
  Sex: Female
  Weight: 138.15 kg

DRUGS (20)
  1. SUPER B [Concomitant]
  2. NORTRIPTYLINE [Concomitant]
     Active Substance: NORTRIPTYLINE
  3. ACETAMINOPHEN. [Concomitant]
     Active Substance: ACETAMINOPHEN
  4. ALPHA LIPOIC ACID [Concomitant]
     Active Substance: .ALPHA.-LIPOIC ACID
  5. MAGNESIUM TAURATE [Concomitant]
  6. WOMENS ONE A DAY [Concomitant]
  7. OXYCODONE [Concomitant]
     Active Substance: OXYCODONE
  8. AJOVY [Suspect]
     Active Substance: FREMANEZUMAB-VFRM
     Indication: MIGRAINE
     Dosage: ?          QUANTITY:1 INJECTION(S);OTHER FREQUENCY:MONTHLY;?
     Route: 030
     Dates: start: 20210601, end: 20210601
  9. ATENOLOL. [Concomitant]
     Active Substance: ATENOLOL
  10. TOPIRAMATE. [Concomitant]
     Active Substance: TOPIRAMATE
  11. CAFFEINE. [Concomitant]
     Active Substance: CAFFEINE
  12. APPLE CIDER VINEGAR W/GINGER CAYENNE +MAPLE [Concomitant]
  13. COLLAGEN AND BIOTIN [Concomitant]
  14. CALCIUM AND VIT D3 [Concomitant]
  15. LYRICA [Concomitant]
     Active Substance: PREGABALIN
  16. ONDANSETRON [Concomitant]
     Active Substance: ONDANSETRON
  17. POTASSIUM [Concomitant]
     Active Substance: POTASSIUM
  18. METHOCARBAMOL. [Concomitant]
     Active Substance: METHOCARBAMOL
  19. KIRKLAND SIGNATURE ALLERCLEAR [Concomitant]
     Active Substance: LORATADINE
  20. MELOXICAM. [Concomitant]
     Active Substance: MELOXICAM

REACTIONS (5)
  - Hypoaesthesia oral [None]
  - Rash [None]
  - Dyspnoea [None]
  - Hypoaesthesia [None]
  - Drug hypersensitivity [None]

NARRATIVE: CASE EVENT DATE: 20210601
